FAERS Safety Report 13942587 (Version 8)
Quarter: 2019Q2

REPORT INFORMATION
  Report Type: Report from Study
  Country: US (occurrence: US)
  Receive Date: 20170907
  Receipt Date: 20190415
  Transmission Date: 20190711
  Serious: Yes (Hospitalization)
  Sender: FDA-Public Use
  Company Number: US-SA-2017SA162129

PATIENT
  Age: 61 Year
  Sex: Female

DRUGS (4)
  1. PANCRELIPASE. [Concomitant]
     Active Substance: PANCRELIPASE
     Dosage: 1000 DF,TID
     Route: 048
     Dates: start: 20170817
  2. PLERIXAFOR [Suspect]
     Active Substance: PLERIXAFOR
     Indication: HAEMATOPOIETIC STEM CELL MOBILISATION
     Dosage: 80 UG/KG,UNK
     Route: 042
     Dates: start: 20170821
  3. PREMARIN [Concomitant]
     Active Substance: ESTROGENS, CONJUGATED
     Dosage: .625 MG,BID
     Route: 061
     Dates: start: 20160816
  4. VENTOLIN HFA [Concomitant]
     Active Substance: ALBUTEROL SULFATE
     Dosage: 108 UG,QID
     Route: 065
     Dates: start: 20160802

REACTIONS (2)
  - Arrhythmia supraventricular [Recovered/Resolved]
  - Anaemia [Recovered/Resolved]

NARRATIVE: CASE EVENT DATE: 20170821
